FAERS Safety Report 4520905-0 (Version None)
Quarter: 2004Q4

REPORT INFORMATION
  Report Type: 
  Country: None (occurrence: None)
  Receive Date: 20041203
  Receipt Date: 20041123
  Transmission Date: 20050328
  Serious: Yes (Hospitalization)
  Sender: FDA-Public Use
  Company Number: 2004097569

PATIENT
  Age: 58 Year
  Sex: Male

DRUGS (11)
  1. ESTRAMUSTINE PHOSPHATE SODIUM CAPSULE (ESTRAMUSTINE PHOSPHATE SODIUM) [Suspect]
     Indication: PROSTATE CANCER
     Dosage: 420 MG (140 MG, 3 D), ORAL
     Route: 048
     Dates: start: 20041014, end: 20041112
  2. ALFUZOSIN (ALFUZOSIN) [Concomitant]
  3. DEXAMETHASONE [Concomitant]
  4. MAGNESIUM (MAGNESIUM) [Concomitant]
  5. OXAZEPAM [Concomitant]
  6. ESOMEPRAZOLE (ESOMEPRAZOLE) [Concomitant]
  7. CLORAZEPATE DIPOTASSIUM [Concomitant]
  8. LACTULOSE [Concomitant]
  9. MORPHINE SULFATE [Concomitant]
  10. OXYCODONE (OXYCODONE) [Concomitant]
  11. GOSERELIN (GOSERELIN) [Concomitant]

REACTIONS (2)
  - VOMITING [None]
  - WEIGHT DECREASED [None]
